FAERS Safety Report 8921058 (Version 1)
Quarter: 2012Q4

REPORT INFORMATION
  Report Type: 
  Country: DE (occurrence: DE)
  Receive Date: 20121121
  Receipt Date: 20121121
  Transmission Date: 20130627
  Serious: Yes (Other)
  Sender: FDA-Public Use
  Company Number: DE-AMGEN-DEUSP2012074688

PATIENT
  Age: 63 Year
  Sex: Female

DRUGS (10)
  1. ENBREL [Suspect]
     Indication: RHEUMATOID ARTHRITIS
     Dosage: 50 mg, weekly
     Dates: start: 20051201
  2. LANTUS [Concomitant]
     Dosage: 6 IU, UNK
  3. MICARDIS [Concomitant]
     Dosage: 80 mg, UNK
  4. BISOPROLOL [Concomitant]
     Dosage: 5 mg, UNK
  5. MOXONIDINE [Concomitant]
     Dosage: 0.15 mg, UNK
  6. NOVONORM [Concomitant]
     Dosage: 6 mg, UNK
  7. METFORMIN [Concomitant]
     Dosage: 2000 mg, UNK
  8. LANTAREL [Concomitant]
     Dosage: 10 mg, tablets
  9. ACTONEL [Concomitant]
     Dosage: 35 mg, UNK
  10. LATAN [Concomitant]
     Dosage: eyedrops, in the evening

REACTIONS (3)
  - Glaucoma [Unknown]
  - Osteoarthritis [Unknown]
  - Drug effect incomplete [Unknown]
